FAERS Safety Report 26129422 (Version 1)
Quarter: 2025Q4

REPORT INFORMATION
  Report Type: Other
  Country: EU (occurrence: EU)
  Receive Date: 20251208
  Receipt Date: 20251208
  Transmission Date: 20260118
  Serious: Yes (Other)
  Sender: BIOCON
  Company Number: None

PATIENT

DRUGS (8)
  1. ADALIMUMAB [Suspect]
     Active Substance: ADALIMUMAB
     Indication: Crohn^s disease
     Dosage: 2 X 80 MG FOR INDUCTION TREATMENT ON 07/04/2025) (160/80/40), ONE INJECTION EVERY 15 DAYS, UNTIL SEP
     Route: 058
     Dates: start: 20240704, end: 20250123
  2. ADALIMUMAB [Suspect]
     Active Substance: ADALIMUMAB
  3. ADALIMUMAB [Suspect]
     Active Substance: ADALIMUMAB
  4. ADALIMUMAB [Suspect]
     Active Substance: ADALIMUMAB
  5. ADALIMUMAB [Suspect]
     Active Substance: ADALIMUMAB
  6. INFLIXIMAB [Suspect]
     Active Substance: INFLIXIMAB
     Indication: Crohn^s disease
     Dosage: 300 MILLIGRAM (ONCE EVERY 8 WEEKS)
     Route: 042
     Dates: start: 20180215, end: 20220201
  7. INFLIXIMAB [Suspect]
     Active Substance: INFLIXIMAB
     Dosage: 300 MILLIGRAM (ONCE EVERY 8 WEEKS)
     Route: 042
     Dates: start: 20221004, end: 20240123
  8. INFLIXIMAB [Suspect]
     Active Substance: INFLIXIMAB
     Indication: Crohn^s disease
     Dosage: 120 MILLIGRAM (ONCE EVERY 15 DAYS)
     Route: 058
     Dates: start: 20220329

REACTIONS (3)
  - Restless legs syndrome [Recovered/Resolved]
  - Ocular rosacea [Recovering/Resolving]
  - Rosacea [Recovering/Resolving]
